FAERS Safety Report 23627561 (Version 3)
Quarter: 2024Q2

REPORT INFORMATION
  Report Type: Spontaneous
  Country: US (occurrence: None)
  Receive Date: 20240313
  Receipt Date: 20240503
  Transmission Date: 20240716
  Serious: Yes (Death, Other)
  Sender: FDA-Public Use
  Company Number: US-MDD US Operations-MDD202403-000823

PATIENT
  Age: 86 Year
  Sex: Male

DRUGS (3)
  1. APOKYN [Suspect]
     Active Substance: APOMORPHINE HYDROCHLORIDE
     Indication: Parkinson^s disease
     Dosage: UP TO 0.3 ML (5 X 3ML)
     Route: 058
     Dates: start: 202210
  2. APOKYN [Suspect]
     Active Substance: APOMORPHINE HYDROCHLORIDE
     Dates: start: 20221114
  3. APOKYN [Suspect]
     Active Substance: APOMORPHINE HYDROCHLORIDE
     Dates: start: 20221114

REACTIONS (1)
  - Hepatic cancer [Fatal]

NARRATIVE: CASE EVENT DATE: 20240318
